FAERS Safety Report 13663228 (Version 2)
Quarter: 2017Q3

REPORT INFORMATION
  Report Type: Report from Study
  Country: US (occurrence: US)
  Receive Date: 20170619
  Receipt Date: 20170728
  Transmission Date: 20171127
  Serious: Yes (Hospitalization, Other)
  Sender: FDA-Public Use
  Company Number: US-GILEAD-2017-0277781

PATIENT
  Age: 50 Year
  Sex: Female

DRUGS (13)
  1. AMBRISENTAN [Suspect]
     Active Substance: AMBRISENTAN
     Indication: PULMONARY HYPERTENSION
     Dosage: 5 MG, QD
     Route: 065
     Dates: start: 20170519
  2. AMLODIPINE [Concomitant]
     Active Substance: AMLODIPINE BESYLATE
  3. FERROUS SULFATE. [Concomitant]
     Active Substance: FERROUS SULFATE
  4. ATORVASTATIN [Concomitant]
     Active Substance: ATORVASTATIN
  5. MYCOPHENOLATE [Concomitant]
     Active Substance: MYCOPHENOLIC ACID
  6. PREDNISONE. [Concomitant]
     Active Substance: PREDNISONE
  7. OMEPRAZOLE. [Concomitant]
     Active Substance: OMEPRAZOLE
  8. DOK [Concomitant]
     Active Substance: DOCUSATE SODIUM
  9. SYMBICORT [Concomitant]
     Active Substance: BUDESONIDE\FORMOTEROL FUMARATE DIHYDRATE
  10. FUROSEMIDE. [Concomitant]
     Active Substance: FUROSEMIDE
  11. SILDENAFIL. [Concomitant]
     Active Substance: SILDENAFIL
  12. LISINOPRIL. [Concomitant]
     Active Substance: LISINOPRIL
  13. ASPIRIN 81 [Concomitant]
     Active Substance: ASPIRIN

REACTIONS (2)
  - Pneumonia [Unknown]
  - Drug dose omission [Unknown]

NARRATIVE: CASE EVENT DATE: 20170626
